FAERS Safety Report 10137245 (Version 1)
Quarter: 2014Q2

REPORT INFORMATION
  Report Type: Spontaneous
  Country: US (occurrence: US)
  Receive Date: 20140429
  Receipt Date: 20140429
  Transmission Date: 20141212
  Serious: No
  Sender: FDA-Public Use
  Company Number: US-ABBVIE-14P-163-1212030-00

PATIENT
  Age: 58 Year
  Sex: Male
  Weight: 118.04 kg

DRUGS (18)
  1. ANDROGEL [Suspect]
     Indication: BLOOD TESTOSTERONE DECREASED
     Dosage: 4 PUMPS
     Route: 061
     Dates: start: 201401, end: 201402
  2. ANDROGEL [Suspect]
     Dosage: 4 PUMPS IN AM, AND 2 PUMPS AT NIGHT
     Route: 061
     Dates: start: 201402
  3. CLONAZEPAM [Concomitant]
     Indication: PANIC ATTACK
  4. FENOFIBRATE [Concomitant]
     Indication: BLOOD CHOLESTEROL INCREASED
  5. MELOXICAM [Concomitant]
     Indication: PRODUCT USED FOR UNKNOWN INDICATION
  6. CRESTOR [Concomitant]
     Indication: BLOOD CHOLESTEROL INCREASED
  7. HYDROCODONE [Concomitant]
     Indication: BACK PAIN
  8. LOTEPREDNOL [Concomitant]
     Indication: PRODUCT USED FOR UNKNOWN INDICATION
  9. PHENTERMINE [Concomitant]
     Indication: PRODUCT USED FOR UNKNOWN INDICATION
  10. CODEINE W/GUAIFENESIN [Concomitant]
     Indication: PRODUCT USED FOR UNKNOWN INDICATION
  11. LISINOPRIL [Concomitant]
     Indication: HYPERTENSION
  12. LORATADINE [Concomitant]
     Indication: HYPERSENSITIVITY
  13. TRAZODONE [Concomitant]
     Indication: INSOMNIA
  14. CITALOPRAM [Concomitant]
     Indication: PRODUCT USED FOR UNKNOWN INDICATION
  15. ACYCLOVIR [Concomitant]
     Indication: ORAL HERPES
  16. EPIPEN [Concomitant]
     Indication: ALLERGY TO ARTHROPOD STING
  17. ASPIRIN [Concomitant]
     Indication: CARDIAC DISORDER
  18. AMOXICILLIN [Concomitant]
     Indication: PRODUCT USED FOR UNKNOWN INDICATION
     Dosage: AS NEEDED BEFORE DENTIST APPOINTMENTS

REACTIONS (7)
  - Off label use [Not Recovered/Not Resolved]
  - Blood testosterone decreased [Unknown]
  - Erectile dysfunction [Not Recovered/Not Resolved]
  - Ejaculation delayed [Not Recovered/Not Resolved]
  - Erectile dysfunction [Not Recovered/Not Resolved]
  - Erectile dysfunction [Not Recovered/Not Resolved]
  - Anorgasmia [Not Recovered/Not Resolved]
